FAERS Safety Report 19077276 (Version 1)
Quarter: 2021Q1

REPORT INFORMATION
  Report Type: Spontaneous
  Country: US (occurrence: US)
  Receive Date: 20210330
  Receipt Date: 20210330
  Transmission Date: 20210420
  Serious: Yes (Hospitalization, Other)
  Sender: FDA-Public Use
  Company Number: None

PATIENT

DRUGS (2)
  1. AMIODARONE [Suspect]
     Active Substance: AMIODARONE
  2. ONDANSETRON [Suspect]
     Active Substance: ONDANSETRON

REACTIONS (6)
  - Asthenia [None]
  - Culture positive [None]
  - Nausea [None]
  - Staphylococcal infection [None]
  - Urinary tract infection [None]
  - Electrocardiogram QT prolonged [None]

NARRATIVE: CASE EVENT DATE: 20191027
